FAERS Safety Report 5045564-2 (Version None)
Quarter: 2006Q3

REPORT INFORMATION
  Report Type: 
  Country: None (occurrence: None)
  Receive Date: 20060707
  Receipt Date: 20060626
  Transmission Date: 20061208
  Serious: Yes (Hospitalization)
  Sender: FDA-Public Use
  Company Number: US-ROCHE-453305

PATIENT
  Age: 51 Year
  Sex: Male
  Weight: 69.4 kg

DRUGS (6)
  1. XELODA [Suspect]
     Route: 048
     Dates: end: 20060626
  2. OXALIPLATIN [Suspect]
     Route: 042
     Dates: end: 20060626
  3. FENTANYL [Concomitant]
     Indication: PAIN
     Route: 062
  4. COLACE [Concomitant]
     Dates: start: 20060602, end: 20060612
  5. IRON [Concomitant]
     Dates: start: 20060602, end: 20060612
  6. FLAGYL [Concomitant]
     Dates: start: 20060602, end: 20060612

REACTIONS (2)
  - CLOSTRIDIAL INFECTION [None]
  - RENAL PAIN [None]
